FAERS Safety Report 11660018 (Version 1)
Quarter: 2015Q4

REPORT INFORMATION
  Report Type: Spontaneous
  Country: US (occurrence: US)
  Receive Date: 20151026
  Receipt Date: 20151026
  Transmission Date: 20160304
  Serious: Yes (Other)
  Sender: FDA-Public Use
  Company Number: US-PROCTER_AND_GAMBLE-GS15013097

PATIENT

DRUGS (1)
  1. CREST [Suspect]
     Active Substance: SODIUM FLUORIDE
     Route: 002

REACTIONS (1)
  - Gingival disorder [Unknown]
